FAERS Safety Report 15806437 (Version 1)
Quarter: 2019Q1

REPORT INFORMATION
  Report Type: Spontaneous
  Country: US (occurrence: US)
  Receive Date: 20190110
  Receipt Date: 20190110
  Transmission Date: 20190417
  Serious: No
  Sender: FDA-Public Use
  Company Number: None

PATIENT
  Age: 31 Year
  Sex: Male
  Weight: 65.7 kg

DRUGS (3)
  1. ZYPREXA 5MG AND 10 MG [Concomitant]
  2. VITAMIN C [Concomitant]
     Active Substance: ASCORBIC ACID
  3. DIVALPROEX DR 500MG SUBSTITUTE FOR DEPAKOTE [Suspect]
     Active Substance: DIVALPROEX SODIUM
     Indication: DEPRESSION
     Dosage: ?          QUANTITY:60 TABLET(S);?
     Route: 048
     Dates: start: 20181206, end: 20190101

REACTIONS (2)
  - Nipple pain [None]
  - Emotional distress [None]

NARRATIVE: CASE EVENT DATE: 20190110
